FAERS Safety Report 18387044 (Version 1)
Quarter: 2020Q4

REPORT INFORMATION
  Report Type: Spontaneous
  Country: AR (occurrence: AR)
  Receive Date: 20201015
  Receipt Date: 20201015
  Transmission Date: 20210114
  Serious: Yes (Other)
  Sender: FDA-Public Use
  Company Number: NVSC2020AR262266

PATIENT
  Age: 71 Year
  Sex: Female

DRUGS (7)
  1. EUTIROX [Concomitant]
     Active Substance: LEVOTHYROXINE SODIUM
     Indication: HYPOTHYROIDISM
     Dosage: 0.75 UNK, (UNITS NOT PROVIDED)
     Route: 065
  2. MAGNESIUM [Concomitant]
     Active Substance: MAGNESIUM
     Route: 065
  3. DIOVAN D [Suspect]
     Active Substance: HYDROCHLOROTHIAZIDE\VALSARTAN
     Indication: HYPERTENSION
  4. ARTRODAR [Concomitant]
     Active Substance: DIACEREIN
     Route: 065
  5. TAFIROL [Concomitant]
     Route: 065
  6. MIOPROPAN [Concomitant]
     Dosage: UNK
     Route: 065
     Dates: start: 2003
  7. DIOVAN D [Suspect]
     Active Substance: HYDROCHLOROTHIAZIDE\VALSARTAN
     Indication: BLOOD PRESSURE ABNORMAL
     Dosage: 1 DF, QD (160/12.5)
     Route: 048

REACTIONS (14)
  - Heart rate increased [Unknown]
  - Finger deformity [Unknown]
  - Blood glucose increased [Unknown]
  - Blood cholesterol increased [Unknown]
  - Anxiety [Unknown]
  - Blood pressure increased [Not Recovered/Not Resolved]
  - Fear [Unknown]
  - Ischaemia [Unknown]
  - Chest pain [Unknown]
  - Osteoarthritis [Not Recovered/Not Resolved]
  - Polyp [Unknown]
  - Pain in extremity [Unknown]
  - Pain [Unknown]
  - Product dose omission issue [Unknown]

NARRATIVE: CASE EVENT DATE: 202003
